FAERS Safety Report 8935207 (Version 2)
Quarter: 2014Q1

REPORT INFORMATION
  Report Type: Spontaneous
  Country: ES (occurrence: ES)
  Receive Date: 20121129
  Receipt Date: 20140307
  Transmission Date: 20141002
  Serious: Yes (Other)
  Sender: FDA-Public Use
  Company Number: PHHY2012ES108326

PATIENT
  Age: 75 Year
  Sex: Female

DRUGS (7)
  1. THIAMAZOLE [Suspect]
     Indication: HYPERTHYROIDISM
     Dosage: 20 MG, QD
  2. THIAMAZOLE [Suspect]
     Dosage: 15 MG, QD
  3. CARBIMAZOLE [Suspect]
     Indication: HYPERTHYROIDISM
     Dosage: 15 MG, QD
  4. ATENOLOL [Concomitant]
     Indication: HYPERTENSION
     Dates: start: 2006
  5. INDAPAMIDE [Concomitant]
     Indication: HYPERTENSION
  6. IBANDRONATE [Concomitant]
     Indication: OSTEOPOROSIS
     Dates: start: 2008
  7. DEXAMETHASONE [Concomitant]
     Indication: DERMATITIS ALLERGIC
     Route: 048

REACTIONS (2)
  - Drug-induced liver injury [Recovered/Resolved]
  - Hepatic necrosis [Recovered/Resolved]
